FAERS Safety Report 10596064 (Version 2)
Quarter: 2015Q1

REPORT INFORMATION
  Report Type: Spontaneous
  Country: US (occurrence: US)
  Receive Date: 20141120
  Receipt Date: 20150303
  Transmission Date: 20150720
  Serious: No
  Sender: FDA-Public Use
  Company Number: US-GLAXOSMITHKLINE-US2014GSK024325

PATIENT
  Sex: Female

DRUGS (1)
  1. BREO ELLIPTA [Suspect]
     Active Substance: FLUTICASONE FUROATE\VILANTEROL TRIFENATATE
     Dosage: UNK
     Route: 055
     Dates: start: 201407

REACTIONS (2)
  - Product quality issue [Unknown]
  - Dysphonia [Unknown]
